FAERS Safety Report 23362452 (Version 8)
Quarter: 2025Q4

REPORT INFORMATION
  Report Type: Report from Study
  Country: US (occurrence: US)
  Receive Date: 20240103
  Receipt Date: 20251128
  Transmission Date: 20260118
  Serious: Yes (Other)
  Sender: TAKEDA
  Company Number: US-TAKEDA-2023TUS116068

PATIENT
  Age: 53 Year
  Sex: Female

DRUGS (18)
  1. PONATINIB [Suspect]
     Active Substance: PONATINIB
     Indication: Acute lymphocytic leukaemia
     Dosage: 15 MILLIGRAM, QD
  2. PONATINIB [Suspect]
     Active Substance: PONATINIB
     Indication: Acute lymphocytic leukaemia (in remission)
     Dosage: 30 MILLIGRAM, QD
  3. PONATINIB [Suspect]
     Active Substance: PONATINIB
     Dosage: 30 MILLIGRAM, QD
  4. PONATINIB [Suspect]
     Active Substance: PONATINIB
     Dosage: 30 MILLIGRAM, QD
  5. PONATINIB [Suspect]
     Active Substance: PONATINIB
     Dosage: 30 MILLIGRAM, QD
  6. PONATINIB [Suspect]
     Active Substance: PONATINIB
     Dosage: 30 MILLIGRAM, QD
  7. MORPHINE [Suspect]
     Active Substance: MORPHINE
     Indication: Product used for unknown indication
     Dosage: UNK
  8. MORPHINE [Suspect]
     Active Substance: MORPHINE
     Indication: Product used for unknown indication
     Dosage: UNK
  9. LEVAQUIN [Suspect]
     Active Substance: LEVOFLOXACIN
     Indication: Product used for unknown indication
     Dosage: UNK
  10. CALCIUM [Concomitant]
     Active Substance: CALCIUM
     Dosage: UNK
  11. BIOTIN [Concomitant]
     Active Substance: BIOTIN
     Dosage: UNK
  12. OXYCODONE HYDROCHLORIDE [Concomitant]
     Active Substance: OXYCODONE HYDROCHLORIDE
     Dosage: UNK
  13. BENADRYL [Concomitant]
     Active Substance: DIPHENHYDRAMINE HYDROCHLORIDE
     Dosage: UNK
  14. KETOROLAC TROMETHAMINE [Concomitant]
     Active Substance: KETOROLAC TROMETHAMINE
     Dosage: UNK
  15. BUTALBITAL COMPOUND [Concomitant]
     Active Substance: ASPIRIN\BUTALBITAL\CAFFEINE
     Dosage: UNK
  16. CREON [Concomitant]
     Active Substance: PANCRELIPASE AMYLASE\PANCRELIPASE LIPASE\PANCRELIPASE PROTEASE
     Dosage: UNK
  17. FINASTERIDE [Concomitant]
     Active Substance: FINASTERIDE
     Dosage: UNK
  18. VANCOMYCIN HYDROCHLORIDE [Concomitant]
     Active Substance: VANCOMYCIN HYDROCHLORIDE
     Dosage: UNK

REACTIONS (17)
  - Pancreatitis chronic [Unknown]
  - Bacteraemia [Unknown]
  - Sepsis [Unknown]
  - Device related infection [Unknown]
  - Gastrointestinal disorder [Unknown]
  - Dysphagia [Unknown]
  - Speech disorder [Unknown]
  - Product dose omission issue [Unknown]
  - Off label use [Unknown]
  - Migraine [Unknown]
  - Pruritus [Unknown]
  - Dizziness [Unknown]
  - Vomiting [Unknown]
  - Arthralgia [Unknown]
  - Pain [Unknown]
  - Dyspnoea [Unknown]
  - Diarrhoea [Unknown]
